FAERS Safety Report 12167066 (Version 2)
Quarter: 2016Q1

REPORT INFORMATION
  Report Type: Spontaneous
  Country: US (occurrence: US)
  Receive Date: 20160310
  Receipt Date: 20160318
  Transmission Date: 20160526
  Serious: Yes (Death)
  Sender: FDA-Public Use
  Company Number: PHEH2016US005638

PATIENT
  Sex: Female
  Weight: 71.66 kg

DRUGS (2)
  1. MEKINIST [Suspect]
     Active Substance: TRAMETINIB DIMETHYL SULFOXIDE
     Indication: MALIGNANT MELANOMA STAGE III
     Dosage: 2 MG, QD
     Route: 048
     Dates: start: 201409, end: 20160211
  2. TAFINLAR [Suspect]
     Active Substance: DABRAFENIB MESYLATE
     Indication: MALIGNANT MELANOMA STAGE III
     Dosage: 150 MG, BID
     Route: 048
     Dates: start: 20140922, end: 20160211

REACTIONS (1)
  - Malignant neoplasm progression [Fatal]
